FAERS Safety Report 16726261 (Version 1)
Quarter: 2019Q3

REPORT INFORMATION
  Report Type: Spontaneous
  Country: CN (occurrence: CN)
  Receive Date: 20190821
  Receipt Date: 20190821
  Transmission Date: 20191005
  Serious: Yes (Hospitalization)
  Sender: FDA-Public Use
  Company Number: CN-ROCHE-2373910

PATIENT
  Age: 51 Year
  Sex: Female
  Weight: 70.8 kg

DRUGS (6)
  1. HERCEPTIN [Suspect]
     Active Substance: TRASTUZUMAB
     Indication: INVASIVE DUCTAL BREAST CARCINOMA
     Route: 041
     Dates: start: 20190717, end: 20190717
  2. DOCETAXEL. [Suspect]
     Active Substance: DOCETAXEL
     Indication: INVASIVE DUCTAL BREAST CARCINOMA
     Route: 041
     Dates: start: 20190716, end: 20190716
  3. GLUCOSE INJECTION [Concomitant]
     Active Substance: DEXTROSE
     Dosage: SOLVENT FOR CARBOPLATIN FOR INJECTION
     Route: 041
     Dates: start: 20190716, end: 20190716
  4. SODIUM CHLORIDE. [Concomitant]
     Active Substance: SODIUM CHLORIDE
     Dosage: SOLVENT FOR TRASTUZUMAB
     Route: 041
     Dates: start: 20190717, end: 20190717
  5. CARBOPLATIN. [Suspect]
     Active Substance: CARBOPLATIN
     Indication: INVASIVE DUCTAL BREAST CARCINOMA
     Route: 041
     Dates: start: 20190716, end: 20190716
  6. SODIUM CHLORIDE. [Concomitant]
     Active Substance: SODIUM CHLORIDE
     Dosage: SOLVENT FOR DOCETAXEL INJECTION
     Route: 041
     Dates: start: 20190716, end: 20190716

REACTIONS (1)
  - Bone marrow failure [Recovered/Resolved]

NARRATIVE: CASE EVENT DATE: 20190723
